FAERS Safety Report 22090431 (Version 2)
Quarter: 2023Q2

REPORT INFORMATION
  Report Type: Spontaneous
  Country: US (occurrence: US)
  Receive Date: 20230313
  Receipt Date: 20230621
  Transmission Date: 20230721
  Serious: No
  Sender: FDA-Public Use
  Company Number: US-BRISTOL-MYERS SQUIBB COMPANY-2023-035177

PATIENT
  Age: 47 Year
  Sex: Female
  Weight: 53 kg

DRUGS (1)
  1. OPDIVO [Suspect]
     Active Substance: NIVOLUMAB
     Indication: Linitis plastica
     Dosage: DOSE : 240 MG;     FREQ : EVERY 14 DAYS.
     Route: 042
     Dates: start: 20221230, end: 20230111

REACTIONS (2)
  - Toxicity to various agents [Unknown]
  - Off label use [Unknown]
